FAERS Safety Report 23248186 (Version 2)
Quarter: 2023Q4

REPORT INFORMATION
  Report Type: Spontaneous
  Country: US (occurrence: US)
  Receive Date: 20231130
  Receipt Date: 20231205
  Transmission Date: 20240110
  Serious: No
  Sender: FDA-Public Use
  Company Number: US-SANOFI-01850202

PATIENT
  Age: 73 Year
  Sex: Female

DRUGS (3)
  1. DUPIXENT [Suspect]
     Active Substance: DUPILUMAB
     Indication: Chronic rhinosinusitis with nasal polyps
     Dosage: UNK
     Route: 058
  2. CELEBREX [Concomitant]
     Active Substance: CELECOXIB
  3. FAMOTIDINE [Concomitant]
     Active Substance: FAMOTIDINE

REACTIONS (5)
  - Arthritis [Unknown]
  - Osteoporosis [Unknown]
  - Infection [Unknown]
  - Arthralgia [Unknown]
  - Nasal operation [Unknown]

NARRATIVE: CASE EVENT DATE: 20230828
